FAERS Safety Report 4583523-4 (Version None)
Quarter: 2005Q1

REPORT INFORMATION
  Report Type: 
  Country: None (occurrence: None)
  Receive Date: 20050211
  Receipt Date: 20041115
  Transmission Date: 20050727
  Serious: Yes (Life-Threatening, Hospitalization, Other)
  Sender: FDA-Public Use
  Company Number: 2004221722FR

PATIENT
  Age: 94 Year
  Sex: Male
  Weight: 58 kg

DRUGS (6)
  1. CELEBREX [Suspect]
     Indication: INFLAMMATION
     Dosage: 400 MG (200 MG, 2 IN 1 D), ORAL
     Route: 048
     Dates: start: 20031206, end: 20031212
  2. NADROPARIN (NADROPARIN) [Suspect]
     Indication: PHLEBITIS
     Dosage: 0.3 ML (0.3 ML, DAILY), SUBCUTANEOUS
     Route: 058
     Dates: start: 20031206
  3. HEPARIN-FRACTION, CALCIUM SALT (HEPARIN-FRACTION, CALCIUM SALT) [Concomitant]
  4. PROPOXYPHENE HCL [Concomitant]
  5. CAFFEINE/OPIUM/PARACETAMOL (CAFFEINE, OPIUM TINCTURE, PARACETAMOL) [Concomitant]
  6. TIAPRIDE (TIAPRIDE) [Concomitant]

REACTIONS (5)
  - ANAEMIA [None]
  - DRUG INTERACTION [None]
  - GASTROINTESTINAL HAEMORRHAGE [None]
  - HAEMATOCHEZIA [None]
  - RESTLESSNESS [None]
